FAERS Safety Report 13908593 (Version 1)
Quarter: 2017Q3

REPORT INFORMATION
  Report Type: Spontaneous
  Country: US (occurrence: US)
  Receive Date: 20170827
  Receipt Date: 20170827
  Transmission Date: 20171127
  Serious: Yes (Death)
  Sender: FDA-Public Use
  Company Number: US-CELGENEUS-USA-20170805038

PATIENT
  Age: 49 Year
  Sex: Male

DRUGS (3)
  1. POMALYST [Suspect]
     Active Substance: POMALIDOMIDE
     Indication: PLASMA CELL MYELOMA
     Dosage: 3 MILLIGRAM
     Route: 048
     Dates: start: 20160903
  2. POMALYST [Suspect]
     Active Substance: POMALIDOMIDE
     Dosage: 1-2 MILLIGRAM
     Route: 048
     Dates: start: 201611
  3. POMALYST [Suspect]
     Active Substance: POMALIDOMIDE
     Dosage: 3 MILLIGRAM
     Route: 048
     Dates: start: 201706

REACTIONS (1)
  - Death [Fatal]

NARRATIVE: CASE EVENT DATE: 20170812
